FAERS Safety Report 8569236-2 (Version None)
Quarter: 2012Q3

REPORT INFORMATION
  Report Type: 
  Country: None (occurrence: None)
  Receive Date: 20120803
  Receipt Date: 20120228
  Transmission Date: 20120928
  Serious: No
  Sender: FDA-Public Use
  Company Number: US-ABBOTT-12P-163-0909670-00

PATIENT
  Sex: Male
  Weight: 72.64 kg

DRUGS (7)
  1. PLAVIX [Concomitant]
     Indication: CARDIAC DISORDER
  2. NIASPAN [Suspect]
     Indication: BLOOD CHOLESTEROL INCREASED
     Dates: start: 20110101, end: 20120201
  3. JANUVIA [Concomitant]
     Indication: DIABETES MELLITUS
  4. ASPIRIN [Concomitant]
     Indication: CARDIAC DISORDER
  5. DIOVAN [Concomitant]
     Indication: HYPERTENSION
  6. NIASPAN [Suspect]
     Dosage: 1000 MG DAILY
     Dates: start: 20120201
  7. CRESTOR [Concomitant]
     Indication: BLOOD CHOLESTEROL INCREASED

REACTIONS (2)
  - OCULAR HYPERAEMIA [None]
  - BLOOD GLUCOSE DECREASED [None]
